FAERS Safety Report 7325213-0 (Version None)
Quarter: 2011Q1

REPORT INFORMATION
  Report Type: 
  Country: None (occurrence: None)
  Receive Date: 20110302
  Receipt Date: 20110223
  Transmission Date: 20110831
  Serious: Yes (Other)
  Sender: FDA-Public Use
  Company Number: BE-SHIRE-SPV1-2011-00144

PATIENT
  Sex: Male
  Weight: 86 kg

DRUGS (2)
  1. RAMIPRIL [Concomitant]
     Indication: HYPERTENSION
     Dosage: 10 MG, UNKNOWN
     Route: 065
     Dates: start: 20060101
  2. XAGRID [Suspect]
     Indication: ESSENTIAL THROMBOCYTHAEMIA
     Dosage: 2 MG, 1X/DAY:QD
     Route: 048
     Dates: start: 19940101

REACTIONS (3)
  - RENAL TUBULAR ATROPHY [None]
  - KIDNEY FIBROSIS [None]
  - RENAL IMPAIRMENT [None]
